FAERS Safety Report 15875665 (Version 1)
Quarter: 2019Q1

REPORT INFORMATION
  Report Type: Spontaneous
  Country: US (occurrence: US)
  Receive Date: 20190126
  Receipt Date: 20190126
  Transmission Date: 20190417
  Serious: No
  Sender: FDA-Public Use
  Company Number: US-ACORDA-ACO_155197_2018

PATIENT
  Sex: Female

DRUGS (2)
  1. TECFIDERA [Suspect]
     Active Substance: DIMETHYL FUMARATE
     Indication: MULTIPLE SCLEROSIS
     Dosage: 240 MILLIGRAM, BID
     Route: 048
     Dates: start: 20180604
  2. AMPYRA [Suspect]
     Active Substance: DALFAMPRIDINE
     Indication: MULTIPLE SCLEROSIS
     Dosage: UNK
     Route: 065
     Dates: start: 20110517

REACTIONS (7)
  - Central nervous system lesion [Unknown]
  - Pain [Recovered/Resolved]
  - Multiple sclerosis [Recovered/Resolved]
  - Muscular weakness [Unknown]
  - Movement disorder [Unknown]
  - Gait disturbance [Unknown]
  - Hypokinesia [Recovered/Resolved]
